FAERS Safety Report 20695293 (Version 1)
Quarter: 2022Q2

REPORT INFORMATION
  Report Type: Spontaneous
  Country: US (occurrence: US)
  Receive Date: 20220411
  Receipt Date: 20220411
  Transmission Date: 20220721
  Serious: No
  Sender: FDA-Public Use
  Company Number: US-TAKEDA-2022TUS024104

PATIENT
  Sex: Female
  Weight: 71.4 kg

DRUGS (2)
  1. LIVTENCITY [Suspect]
     Active Substance: MARIBAVIR
     Indication: Cytomegalovirus infection
     Dosage: 400 MILLIGRAM, BID
     Route: 048
     Dates: start: 20220308
  2. LIVTENCITY [Suspect]
     Active Substance: MARIBAVIR
     Indication: Heart transplant

REACTIONS (1)
  - Gastrointestinal disorder [Unknown]
